FAERS Safety Report 16999624 (Version 1)
Quarter: 2019Q4

REPORT INFORMATION
  Report Type: Spontaneous
  Country: FR (occurrence: FR)
  Receive Date: 20191105
  Receipt Date: 20191105
  Transmission Date: 20200122
  Serious: Yes (Other)
  Sender: FDA-Public Use
  Company Number: FR-INGENUS PHARMACEUTICALS, LLC-2019INF000367

PATIENT
  Age: 69 Year
  Sex: Male

DRUGS (2)
  1. CIPROFLOXACIN. [Concomitant]
     Active Substance: CIPROFLOXACIN
     Indication: URINARY TRACT INFECTION
     Dosage: 1 GRAM, QD
     Route: 065
  2. CLOBETASOL PROPIONATE. [Suspect]
     Active Substance: CLOBETASOL PROPIONATE
     Indication: LICHEN SCLEROSUS
     Dosage: UNK
     Route: 061

REACTIONS (1)
  - Malacoplakia [Not Recovered/Not Resolved]
